FAERS Safety Report 25185105 (Version 1)
Quarter: 2025Q2

REPORT INFORMATION
  Report Type: Spontaneous
  Country: US (occurrence: None)
  Receive Date: 20250410
  Receipt Date: 20250410
  Transmission Date: 20250717
  Serious: Yes (Other)
  Sender: FDA-CTU
  Company Number: None

PATIENT
  Age: 13 Year
  Sex: Female

DRUGS (1)
  1. TAFINLAR [Suspect]
     Active Substance: DABRAFENIB MESYLATE
     Indication: Langerhans^ cell histiocytosis
     Dosage: 75 MG BID ORAL ?
     Route: 048
     Dates: start: 20230927

REACTIONS (2)
  - Alopecia [None]
  - Rash [None]

NARRATIVE: CASE EVENT DATE: 20250410
